FAERS Safety Report 8616382-0 (Version None)
Quarter: 2012Q3

REPORT INFORMATION
  Report Type: 
  Country: None (occurrence: None)
  Receive Date: 20120815
  Receipt Date: 20120815
  Transmission Date: 20120928
  Serious: Yes (Life-Threatening, Disabling)
  Sender: FDA-Public Use
  Company Number: None

PATIENT
  Age: 28 Year
  Sex: Female
  Weight: 70.3075 kg

DRUGS (1)
  1. ORTHO TRI-CYCLEN LO [Suspect]
     Indication: CONTRACEPTION
     Dosage: EVERY DAY PO
     Route: 048
     Dates: start: 20050310, end: 20060914

REACTIONS (3)
  - BLINDNESS UNILATERAL [None]
  - THROMBOSIS [None]
  - CEREBROVASCULAR ACCIDENT [None]
